FAERS Safety Report 5144977-8 (Version None)
Quarter: 2006Q4

REPORT INFORMATION
  Report Type: 
  Country: None (occurrence: None)
  Receive Date: 20061107
  Receipt Date: 20061103
  Transmission Date: 20070319
  Serious: Yes (Disabling, Other)
  Sender: FDA-Public Use
  Company Number: US-AMGEN-US196786

PATIENT
  Sex: Female

DRUGS (4)
  1. ENBREL [Suspect]
     Indication: RHEUMATOID ARTHRITIS
     Route: 058
     Dates: start: 20021105, end: 20040401
  2. VOLTAREN [Concomitant]
     Route: 065
     Dates: start: 20031101
  3. ARAVA [Concomitant]
     Route: 065
     Dates: start: 20051101
  4. PREDNISONE TAB [Concomitant]
     Route: 065
     Dates: start: 20051001

REACTIONS (4)
  - BLINDNESS [None]
  - BLINDNESS UNILATERAL [None]
  - HERPES SIMPLEX [None]
  - ULCERATIVE KERATITIS [None]
